FAERS Safety Report 7981449-7 (Version None)
Quarter: 2011Q4

REPORT INFORMATION
  Report Type: 
  Country: None (occurrence: None)
  Receive Date: 20111212
  Receipt Date: 20111129
  Transmission Date: 20120403
  Serious: Yes (Other)
  Sender: FDA-Public Use
  Company Number: GGEL20111101555

PATIENT

DRUGS (1)
  1. ROPINIROLE [Suspect]
     Indication: PARKINSON'S DISEASE
     Dosage: 6 DOSAGE FORMS, 3 IN 1 D, ORAL
     Route: 048

REACTIONS (5)
  - CONDITION AGGRAVATED [None]
  - DRUG LEVEL FLUCTUATING [None]
  - PARKINSON'S DISEASE [None]
  - DRUG LEVEL DECREASED [None]
  - DRUG INEFFECTIVE [None]
